FAERS Safety Report 7792132-5 (Version None)
Quarter: 2011Q3

REPORT INFORMATION
  Report Type: 
  Country: None (occurrence: None)
  Receive Date: 20110929
  Receipt Date: 20110919
  Transmission Date: 20111222
  Serious: Yes (Other)
  Sender: FDA-Public Use
  Company Number: AUR-APL-2011-05183

PATIENT
  Age: 53 Year
  Sex: Female
  Weight: 97.51 kg

DRUGS (23)
  1. MONOPRIL [Suspect]
     Indication: PRODUCT USED FOR UNKNOWN INDICATION
  2. ATACAND [Suspect]
     Indication: PRODUCT USED FOR UNKNOWN INDICATION
  3. LISINOPRIL [Suspect]
     Indication: PRODUCT USED FOR UNKNOWN INDICATION
  4. ATENOLOL [Suspect]
     Indication: PRODUCT USED FOR UNKNOWN INDICATION
  5. HYDROCHLOROTHIAZIDE [Concomitant]
  6. POTASSIUM CHLORIDE [Concomitant]
  7. CYMBALTA [Concomitant]
  8. SOMA [Concomitant]
  9. VALIUM [Concomitant]
  10. LYRICA [Suspect]
     Indication: FIBROMYALGIA
     Dosage: SEE IMAGE
     Route: 048
     Dates: start: 20100101, end: 20100101
  11. LYRICA [Suspect]
     Indication: NEURALGIA
     Dosage: SEE IMAGE
     Route: 048
     Dates: start: 20100101, end: 20100101
  12. LYRICA [Suspect]
     Indication: NEUROPATHY PERIPHERAL
     Dosage: SEE IMAGE
     Route: 048
     Dates: start: 20100101, end: 20100101
  13. LYRICA [Suspect]
     Indication: MUSCULOSKELETAL DISCOMFORT
     Dosage: SEE IMAGE
     Route: 048
     Dates: start: 20100101, end: 20100101
  14. LYRICA [Suspect]
     Indication: FIBROMYALGIA
     Dosage: SEE IMAGE
     Route: 048
     Dates: start: 20100101
  15. LYRICA [Suspect]
     Indication: NEURALGIA
     Dosage: SEE IMAGE
     Route: 048
     Dates: start: 20100101
  16. LYRICA [Suspect]
     Indication: NEUROPATHY PERIPHERAL
     Dosage: SEE IMAGE
     Route: 048
     Dates: start: 20100101
  17. LYRICA [Suspect]
     Indication: MUSCULOSKELETAL DISCOMFORT
     Dosage: SEE IMAGE
     Route: 048
     Dates: start: 20100101
  18. LYRICA [Suspect]
     Indication: FIBROMYALGIA
     Dosage: SEE IMAGE
     Route: 048
     Dates: start: 20100101, end: 20100101
  19. LYRICA [Suspect]
     Indication: NEURALGIA
     Dosage: SEE IMAGE
     Route: 048
     Dates: start: 20100101, end: 20100101
  20. LYRICA [Suspect]
     Indication: NEUROPATHY PERIPHERAL
     Dosage: SEE IMAGE
     Route: 048
     Dates: start: 20100101, end: 20100101
  21. LYRICA [Suspect]
     Indication: MUSCULOSKELETAL DISCOMFORT
     Dosage: SEE IMAGE
     Route: 048
     Dates: start: 20100101, end: 20100101
  22. PERCOCET [Concomitant]
  23. METFORMIN HCL [Concomitant]

REACTIONS (7)
  - COGNITIVE DISORDER [None]
  - BLOOD CHOLESTEROL INCREASED [None]
  - ROAD TRAFFIC ACCIDENT [None]
  - DRUG EFFECT DECREASED [None]
  - MENTAL IMPAIRMENT [None]
  - NEURALGIA [None]
  - RENAL FUNCTION TEST ABNORMAL [None]
